FAERS Safety Report 6053972-6 (Version None)
Quarter: 2009Q1

REPORT INFORMATION
  Report Type: 
  Country: None (occurrence: None)
  Receive Date: 20090123
  Receipt Date: 20090123
  Transmission Date: 20090719
  Serious: Yes (Hospitalization, Other)
  Sender: FDA-Public Use
  Company Number: None

PATIENT
  Sex: Female
  Weight: 26.5 kg

DRUGS (2)
  1. GAMMAGARD [Suspect]
     Indication: KAWASAKI'S DISEASE
     Dosage: 8 VIALS OF 20GM FORMULATION IV (DURATION: 3 DOSES OVER 12/31-1/3)
     Route: 042
  2. GAMMAGARD [Suspect]

REACTIONS (2)
  - HAEMOLYTIC ANAEMIA [None]
  - ILL-DEFINED DISORDER [None]
